FAERS Safety Report 19079981 (Version 1)
Quarter: 2021Q2

REPORT INFORMATION
  Report Type: Spontaneous
  Country: US (occurrence: US)
  Receive Date: 20210401
  Receipt Date: 20210401
  Transmission Date: 20210717
  Serious: No
  Sender: FDA-Public Use
  Company Number: US-GLAXOSMITHKLINE-US2021068814

PATIENT
  Sex: Male

DRUGS (2)
  1. VENTOLIN HFA [Suspect]
     Active Substance: ALBUTEROL SULFATE
     Indication: ASTHMA
     Dosage: 1 PUFF(S), AS REQUIRED
     Route: 055
  2. FLOVENT HFA [Suspect]
     Active Substance: FLUTICASONE PROPIONATE
     Indication: ASTHMA
     Dosage: 1 PUFF(S), AS REQUIRED
     Route: 055
     Dates: start: 2015

REACTIONS (5)
  - Skin laceration [Unknown]
  - Drug ineffective [Unknown]
  - Expired product administered [Unknown]
  - Product package associated injury [Unknown]
  - Wrong technique in device usage process [Unknown]
